FAERS Safety Report 16044157 (Version 18)
Quarter: 2019Q4

REPORT INFORMATION
  Report Type: Report from Study
  Country: US (occurrence: US)
  Receive Date: 20190306
  Receipt Date: 20191105
  Transmission Date: 20200122
  Serious: Yes (Death, Hospitalization, Other)
  Sender: FDA-Public Use
  Company Number: US-ACTELION-A-NJ2019-187228

PATIENT
  Age: 37 Year
  Sex: Female
  Weight: 61.68 kg

DRUGS (14)
  1. OPSUMIT [Suspect]
     Active Substance: MACITENTAN
     Indication: PULMONARY HYPERTENSION
     Dosage: 10 MG, QD
     Route: 048
     Dates: start: 20190131, end: 20191026
  2. DIGOXIN. [Concomitant]
     Active Substance: DIGOXIN
  3. VELETRI [Suspect]
     Active Substance: EPOPROSTENOL
     Dosage: 12.8 NG/KG, PER MIN
     Route: 042
  4. LASIX [Suspect]
     Active Substance: FUROSEMIDE
     Indication: PRODUCT USED FOR UNKNOWN INDICATION
     Route: 065
  5. VITAMIN D [Concomitant]
     Active Substance: VITAMIN D NOS
  6. METRONIDAZOLE. [Concomitant]
     Active Substance: METRONIDAZOLE
  7. BENZONATATE. [Concomitant]
     Active Substance: BENZONATATE
  8. AZATHIOPRINE. [Concomitant]
     Active Substance: AZATHIOPRINE
     Dosage: 50 MG, QD
     Dates: start: 2017
  9. PREDNISONE. [Concomitant]
     Active Substance: PREDNISONE
  10. OFLOXACIN. [Concomitant]
     Active Substance: OFLOXACIN
  11. ADEMPAS [Concomitant]
     Active Substance: RIOCIGUAT
     Dosage: 1.5 MG, TID
     Dates: start: 201902
  12. VELETRI [Suspect]
     Active Substance: EPOPROSTENOL
     Indication: PULMONARY HYPERTENSION
     Dosage: 13.2 NG/KG, PER MIN
     Route: 042
  13. FOLIC ACID. [Suspect]
     Active Substance: FOLIC ACID
     Indication: PRODUCT USED FOR UNKNOWN INDICATION
     Dosage: 13.2 NG/KG, PER MIN
     Route: 042
  14. SPIRONOLACTONE. [Concomitant]
     Active Substance: SPIRONOLACTONE

REACTIONS (44)
  - Catheter site related reaction [Recovered/Resolved]
  - Oedema [Not Recovered/Not Resolved]
  - Eye infection [Unknown]
  - Dyspnoea exertional [Recovered/Resolved]
  - Orthopnoea [Recovered/Resolved]
  - Pulmonary arterial pressure increased [Recovered/Resolved]
  - Pruritus [Not Recovered/Not Resolved]
  - Skin irritation [Unknown]
  - Extra dose administered [Unknown]
  - Pain in jaw [Unknown]
  - Pain in extremity [Not Recovered/Not Resolved]
  - Syringe issue [Recovered/Resolved]
  - Palpitations [Recovered/Resolved]
  - Right ventricular failure [Unknown]
  - Hyperhidrosis [Recovered/Resolved]
  - Arthralgia [Not Recovered/Not Resolved]
  - Dyspnoea [Not Recovered/Not Resolved]
  - Fatigue [Recovered/Resolved with Sequelae]
  - Ear discomfort [Not Recovered/Not Resolved]
  - Cardiac failure congestive [Recovered/Resolved]
  - Nausea [Not Recovered/Not Resolved]
  - Chromaturia [Not Recovered/Not Resolved]
  - Abdominal distension [Not Recovered/Not Resolved]
  - Chest pain [Recovered/Resolved]
  - Malaise [Recovered/Resolved]
  - Gait disturbance [Recovered/Resolved]
  - Lethargy [Not Recovered/Not Resolved]
  - Loss of consciousness [Not Recovered/Not Resolved]
  - Product leakage [Unknown]
  - Catheter site rash [Unknown]
  - Device dislocation [Unknown]
  - Productive cough [Unknown]
  - Pulmonary hypertension [Fatal]
  - Asthenia [Fatal]
  - Vomiting [Unknown]
  - Dyspnoea paroxysmal nocturnal [Recovered/Resolved]
  - Catheter site pruritus [Unknown]
  - Headache [Not Recovered/Not Resolved]
  - Diarrhoea [Recovered/Resolved]
  - Dizziness [Unknown]
  - Cough [Recovered/Resolved]
  - Ejection fraction decreased [Recovered/Resolved]
  - Peripheral swelling [Not Recovered/Not Resolved]
  - Weight increased [Recovered/Resolved]

NARRATIVE: CASE EVENT DATE: 20190125
